FAERS Safety Report 5227610-6 (Version None)
Quarter: 2007Q1

REPORT INFORMATION
  Report Type: 
  Country: None (occurrence: None)
  Receive Date: 20061201
  Receipt Date: 20061019
  Transmission Date: 20070707
  Serious: No
  Sender: FDA-Public Use
  Company Number: US200610002839

PATIENT
  Sex: Female

DRUGS (1)
  1. CYMBALTA [Suspect]
     Indication: FIBROMYALGIA
     Dosage: 90 MG, DAILY (1/D), ORAL
     Route: 048
     Dates: start: 20050901

REACTIONS (3)
  - DEPRESSION [None]
  - DRUG EFFECT DECREASED [None]
  - PAIN [None]
